FAERS Safety Report 11191649 (Version 1)
Quarter: 2015Q2

REPORT INFORMATION
  Report Type: Report from Study
  Country: US (occurrence: None)
  Receive Date: 20150603
  Receipt Date: 20150603
  Transmission Date: 20150821
  Serious: No
  Sender: FDA-Public Use
  Company Number: 2015TASUS000755

PATIENT
  Age: 63 Year
  Sex: Female
  Weight: 79.4 kg

DRUGS (1)
  1. HETLIOZ [Suspect]
     Active Substance: TASIMELTEON
     Indication: CIRCADIAN RHYTHM SLEEP DISORDER
     Route: 048
     Dates: start: 201407

REACTIONS (3)
  - Drug effect decreased [None]
  - Drug dose omission [None]
  - Insomnia [None]

NARRATIVE: CASE EVENT DATE: 2015
